FAERS Safety Report 9959424 (Version 1)
Quarter: 2014Q1

REPORT INFORMATION
  Report Type: Report from Study
  Country: US (occurrence: US)
  Receive Date: 20140305
  Receipt Date: 20140305
  Transmission Date: 20141002
  Serious: No
  Sender: FDA-Public Use
  Company Number: US-ABBVIE-13P-163-1106723-00

PATIENT
  Age: 53 Year
  Sex: Female

DRUGS (14)
  1. HUMIRA [Suspect]
     Indication: RHEUMATOID ARTHRITIS
     Dates: start: 201301
  2. PREDNISONE [Concomitant]
     Indication: PRODUCT USED FOR UNKNOWN INDICATION
     Dosage: 10.5 MG DAILY
  3. METHOTREXATE [Concomitant]
     Indication: PRODUCT USED FOR UNKNOWN INDICATION
  4. NORCO [Concomitant]
     Indication: PRODUCT USED FOR UNKNOWN INDICATION
  5. OPANA [Concomitant]
     Indication: PRODUCT USED FOR UNKNOWN INDICATION
  6. BENICAR [Concomitant]
     Indication: BLOOD PRESSURE
     Dosage: ONCE DAILY
  7. VERAPAMIL [Concomitant]
     Indication: BLOOD PRESSURE
     Dosage: ONCE DAILY
  8. NEURONTIN [Concomitant]
     Indication: PAIN
     Dosage: ONCE DAILY
  9. CYMBALTA [Concomitant]
     Indication: PAIN
     Dosage: ONCE DAILY
  10. FORTEO [Concomitant]
     Indication: OSTEOPOROSIS
     Dosage: ONCE DAILY
  11. REQUIP [Concomitant]
     Indication: RESTLESS LEGS SYNDROME
     Dosage: ONCE DAILY
  12. SPIRIVA [Concomitant]
     Indication: PRODUCT USED FOR UNKNOWN INDICATION
  13. FORADIL [Concomitant]
     Indication: ASTHMA
  14. QVAR [Concomitant]
     Indication: ASTHMA

REACTIONS (2)
  - Blood glucose increased [Unknown]
  - Drug ineffective [Not Recovered/Not Resolved]
